FAERS Safety Report 7078201-6 (Version None)
Quarter: 2010Q4

REPORT INFORMATION
  Report Type: 
  Country: None (occurrence: None)
  Receive Date: 20101101
  Receipt Date: 20101101
  Transmission Date: 20110411
  Serious: No
  Sender: FDA-Public Use
  Company Number: None

PATIENT
  Age: 73 Year
  Sex: Female
  Weight: 74.8435 kg

DRUGS (1)
  1. AVELOX [Suspect]
     Indication: SINUSITIS
     Dosage: 1 TABLET DAILY ORAL
     Route: 048
     Dates: start: 20100927, end: 20100930

REACTIONS (4)
  - BACK PAIN [None]
  - IMMOBILE [None]
  - MUSCULOSKELETAL PAIN [None]
  - PARAESTHESIA [None]
